FAERS Safety Report 24204019 (Version 1)
Quarter: 2024Q3

REPORT INFORMATION
  Report Type: Spontaneous
  Country: US (occurrence: US)
  Receive Date: 20240813
  Receipt Date: 20240813
  Transmission Date: 20241016
  Serious: Yes (Other)
  Sender: RANBAXY
  Company Number: US-SUN PHARMACEUTICAL INDUSTRIES LTD-2024R1-461880

PATIENT
  Age: 46 Year
  Sex: Female

DRUGS (3)
  1. TACROLIMUS [Suspect]
     Active Substance: TACROLIMUS
     Indication: Idiopathic intracranial hypertension
     Route: 065
  2. TOPIRAMATE [Suspect]
     Active Substance: TOPIRAMATE
     Indication: Idiopathic intracranial hypertension
     Route: 065
  3. METHAZOLAMIDE [Suspect]
     Active Substance: METHAZOLAMIDE
     Indication: Idiopathic intracranial hypertension
     Route: 065

REACTIONS (3)
  - Renal tubular injury [Unknown]
  - Idiopathic intracranial hypertension [Unknown]
  - Renal artery stenosis [Unknown]
